FAERS Safety Report 25396097 (Version 1)
Quarter: 2025Q2

REPORT INFORMATION
  Report Type: Spontaneous
  Country: TW (occurrence: None)
  Receive Date: 20250604
  Receipt Date: 20250604
  Transmission Date: 20250717
  Serious: Yes (Death)
  Sender: INCYTE
  Company Number: TW-002147023-NVSC2025TW088663

PATIENT
  Age: 82 Year

DRUGS (1)
  1. RUXOLITINIB [Suspect]
     Active Substance: RUXOLITINIB
     Indication: Myelofibrosis
     Dosage: 15 MG, BID

REACTIONS (1)
  - Death [Fatal]
